FAERS Safety Report 20896141 (Version 1)
Quarter: 2022Q2

REPORT INFORMATION
  Report Type: Spontaneous
  Country: US (occurrence: None)
  Receive Date: 20220531
  Receipt Date: 20220531
  Transmission Date: 20220720
  Serious: Yes (Hospitalization)
  Sender: FDA-Public Use
  Company Number: None

PATIENT
  Age: 41 Year
  Sex: Female

DRUGS (1)
  1. CAPECITABINE [Suspect]
     Active Substance: CAPECITABINE
     Dosage: 3500MG DAILY ORAL
     Route: 048
     Dates: start: 202205

REACTIONS (7)
  - Abdominal pain [None]
  - Abdominal distension [None]
  - Therapy interrupted [None]
  - Nausea [None]
  - Diarrhoea [None]
  - Constipation [None]
  - Fatigue [None]

NARRATIVE: CASE EVENT DATE: 20220530
